FAERS Safety Report 13449234 (Version 1)
Quarter: 2017Q2

REPORT INFORMATION
  Report Type: Spontaneous
  Country: US (occurrence: US)
  Receive Date: 20170417
  Receipt Date: 20170417
  Transmission Date: 20170830
  Serious: Yes (Other)
  Sender: FDA-Public Use
  Company Number: US-PFIZER INC-2017146721

PATIENT
  Age: 60 Year
  Sex: Female
  Weight: 63.5 kg

DRUGS (3)
  1. ZOSYN [Suspect]
     Active Substance: PIPERACILLIN SODIUM\TAZOBACTAM SODIUM
     Indication: APPENDICITIS
     Dosage: UNK
     Route: 042
     Dates: end: 20170318
  2. PREMPRO [Concomitant]
     Active Substance: ESTROGENS, CONJUGATED\MEDROXYPROGESTERONE ACETATE
     Indication: MENOPAUSAL SYMPTOMS
     Dosage: 0.3 MG, DAILY
  3. PAROXETINE. [Concomitant]
     Active Substance: PAROXETINE
     Indication: STRESS
     Dosage: 25 MG, DAILY

REACTIONS (3)
  - Vision blurred [Not Recovered/Not Resolved]
  - Blindness transient [Not Recovered/Not Resolved]
  - Visual impairment [Unknown]

NARRATIVE: CASE EVENT DATE: 20170317
